FAERS Safety Report 19697897 (Version 1)
Quarter: 2021Q3

REPORT INFORMATION
  Report Type: Spontaneous
  Country: CA (occurrence: CA)
  Receive Date: 20210813
  Receipt Date: 20210813
  Transmission Date: 20211014
  Serious: Yes (Death, Hospitalization, Other)
  Sender: FDA-Public Use
  Company Number: CA-MYLANLABS-2021M1049368

PATIENT
  Age: 17 Year
  Sex: Male
  Weight: 68 kg

DRUGS (4)
  1. FLUOXETINE [Concomitant]
     Active Substance: FLUOXETINE HYDROCHLORIDE
     Dosage: UNK
  2. MINOCYCLINE [Concomitant]
     Active Substance: MINOCYCLINE HYDROCHLORIDE
     Dosage: UNK
  3. CLINDAMYCIN. [Concomitant]
     Active Substance: CLINDAMYCIN
     Dosage: UNK
     Route: 065
  4. CLARUS [Suspect]
     Active Substance: ISOTRETINOIN
     Indication: ACNE CYSTIC
     Dosage: 40 MILLIGRAM, QD
     Route: 048

REACTIONS (9)
  - Depressed mood [Fatal]
  - Completed suicide [Fatal]
  - Major depression [Fatal]
  - Irritability [Fatal]
  - Depression [Fatal]
  - Disturbance in attention [Fatal]
  - Aggression [Fatal]
  - Fatigue [Fatal]
  - Juvenile idiopathic arthritis [Fatal]
